FAERS Safety Report 9943608 (Version 2)
Quarter: 2014Q1

REPORT INFORMATION
  Report Type: Report from Study
  Country: US (occurrence: US)
  Receive Date: 20140303
  Receipt Date: 20140303
  Transmission Date: 20141002
  Serious: No
  Sender: FDA-Public Use
  Company Number: US-ABBVIE-12P-163-1019729-00

PATIENT
  Age: 53 Year
  Sex: Female

DRUGS (14)
  1. HUMIRA [Suspect]
     Indication: COLITIS ULCERATIVE
     Route: 058
     Dates: start: 20121023, end: 20121204
  2. HUMIRA [Suspect]
     Dates: start: 201301
  3. IMURAN [Concomitant]
     Indication: COLITIS ULCERATIVE
  4. K-DUR POTASSIUM [Concomitant]
     Indication: PRODUCT USED FOR UNKNOWN INDICATION
  5. ISOSORBIDE MONONITRATE ER [Concomitant]
     Indication: CARDIOVASCULAR EVENT PROPHYLAXIS
  6. ISOSORBIDE MONONITRATE ER [Concomitant]
  7. LASIX [Concomitant]
     Indication: CARDIOVASCULAR EVENT PROPHYLAXIS
  8. ZOLOFT [Concomitant]
     Indication: DEPRESSION
  9. FLEXERIL [Concomitant]
     Indication: PRODUCT USED FOR UNKNOWN INDICATION
  10. NEURONTIN [Concomitant]
     Indication: SPINAL OPERATION
  11. LORTAB [Concomitant]
     Indication: NERVOUS SYSTEM DISORDER
     Dosage: 10MG/500MG
  12. COLAZAL [Concomitant]
     Indication: FUNCTIONAL GASTROINTESTINAL DISORDER
  13. CANASA [Concomitant]
     Indication: PRODUCT USED FOR UNKNOWN INDICATION
     Dosage: EVERY NIGHT
     Route: 054
  14. PRILOSEC [Concomitant]
     Indication: PRODUCT USED FOR UNKNOWN INDICATION

REACTIONS (5)
  - Nasopharyngitis [Not Recovered/Not Resolved]
  - Dyspnoea [Recovering/Resolving]
  - Chest discomfort [Unknown]
  - Pain in extremity [Unknown]
  - Nasopharyngitis [Recovering/Resolving]
